FAERS Safety Report 5716374-5 (Version None)
Quarter: 2008Q2

REPORT INFORMATION
  Report Type: 
  Country: None (occurrence: None)
  Receive Date: 20080424
  Receipt Date: 20080421
  Transmission Date: 20081010
  Serious: Yes (Life-Threatening, Hospitalization, Other)
  Sender: FDA-Public Use
  Company Number: PHNU2008DE01037

PATIENT
  Age: 59 Year
  Sex: Male
  Weight: 102 kg

DRUGS (9)
  1. RASILEZ [Suspect]
     Indication: HYPERTENSION
     Dosage: 300 MG/D
     Route: 048
     Dates: start: 20071203
  2. AQUAPHOR TABLET [Suspect]
     Indication: HYPERTENSION
     Dosage: UNK, UNK
     Route: 048
     Dates: start: 20070501, end: 20080120
  3. FALITHROM [Concomitant]
     Indication: ATRIAL FIBRILLATION
     Dosage: UNK, UNK
     Route: 048
     Dates: start: 20040810
  4. BLOPRESS [Concomitant]
     Indication: HYPERTENSION
     Route: 048
     Dates: start: 20060101
  5. CORVATON [Concomitant]
     Indication: ANGINA PECTORIS
     Dosage: 8 MG/D
     Route: 048
     Dates: start: 20070502, end: 20080120
  6. AMLODIPINE [Concomitant]
     Dosage: 5 MG/D
     Route: 048
  7. CLONIDINE HCL [Concomitant]
  8. NITROGLYCERIN [Concomitant]
  9. RAMIPRIL [Concomitant]

REACTIONS (10)
  - CARDIAC FAILURE [None]
  - CONDITION AGGRAVATED [None]
  - CONGESTIVE CARDIOMYOPATHY [None]
  - DILATATION VENTRICULAR [None]
  - EJECTION FRACTION DECREASED [None]
  - HYPOKALAEMIA [None]
  - IMPLANTABLE DEFIBRILLATOR INSERTION [None]
  - LOSS OF CONSCIOUSNESS [None]
  - RESUSCITATION [None]
  - VENTRICULAR FIBRILLATION [None]
